FAERS Safety Report 9876970 (Version 2)
Quarter: 2014Q1

REPORT INFORMATION
  Report Type: Spontaneous
  Country: US (occurrence: US)
  Receive Date: 20140206
  Receipt Date: 20140318
  Transmission Date: 20141002
  Serious: No
  Sender: FDA-Public Use
  Company Number: US-PFIZER INC-2014032956

PATIENT
  Age: 68 Year
  Sex: Female
  Weight: 63 kg

DRUGS (11)
  1. XALKORI [Suspect]
     Dosage: 250 MG, 2X/DAY
     Route: 048
  2. SINGULAIR [Concomitant]
     Dosage: 10 MG, UNK
  3. PANCREASE MT [Concomitant]
     Dosage: 10 UNK, UNK
  4. GABAPENTIN [Concomitant]
     Dosage: 300 MG, UNK
  5. GAVISCON [Concomitant]
     Dosage: UNK
  6. FENOFIBRATE [Concomitant]
     Dosage: 130 MG, UNK
  7. CALCIUM W/MAGNESIUM [Concomitant]
     Dosage: UNK
  8. VITAMIN D3 [Concomitant]
     Dosage: 10000 IU, UNK
  9. ROBINUL FORTE [Concomitant]
     Dosage: 2 MG, UNK
  10. ANUSOL-HC [Concomitant]
     Dosage: 25 MG, UNK
  11. MULTIVITE [Concomitant]
     Dosage: UNK

REACTIONS (4)
  - Swelling [Unknown]
  - Pain in extremity [Unknown]
  - Nausea [Unknown]
  - Photopsia [Unknown]
